FAERS Safety Report 16507776 (Version 1)
Quarter: 2019Q3

REPORT INFORMATION
  Report Type: Spontaneous
  Country: US (occurrence: US)
  Receive Date: 20190701
  Receipt Date: 20190701
  Transmission Date: 20191004
  Serious: Yes (Other)
  Sender: FDA-Public Use
  Company Number: None

PATIENT
  Sex: Female
  Weight: 108.86 kg

DRUGS (7)
  1. 81 MG ASPIRIN [Concomitant]
     Active Substance: ASPIRIN
  2. LEVEMIR [Concomitant]
     Active Substance: INSULIN DETEMIR
  3. GLIMEPERIDE [Concomitant]
     Active Substance: GLIMEPIRIDE
  4. NEXPLANON [Suspect]
     Active Substance: ETONOGESTREL
  5. FOLIC ACID. [Concomitant]
     Active Substance: FOLIC ACID
  6. METFORMIN [Concomitant]
     Active Substance: METFORMIN HYDROCHLORIDE
  7. VITAMIN B12 [Concomitant]
     Active Substance: CYANOCOBALAMIN

REACTIONS (4)
  - Polymenorrhoea [None]
  - Device dislocation [None]
  - Hot flush [None]
  - Scar [None]
